FAERS Safety Report 7959416-9 (Version None)
Quarter: 2011Q4

REPORT INFORMATION
  Report Type: 
  Country: None (occurrence: None)
  Receive Date: 20111206
  Receipt Date: 20111130
  Transmission Date: 20120403
  Serious: Yes (Hospitalization, Other)
  Sender: FDA-Public Use
  Company Number: IT-PFIZER INC-K201100200

PATIENT
  Age: 73 Year
  Sex: Male

DRUGS (8)
  1. SINTROM [Concomitant]
     Dosage: 1 MG, 1X/DAY
     Route: 048
  2. LUVION [Suspect]
     Indication: HYPERTENSIVE CARDIOMYOPATHY
     Dosage: 50 MG, ALTERNATE DAY
     Route: 048
     Dates: start: 20101101, end: 20110105
  3. METFORMIN [Concomitant]
     Dosage: 1 MG, 1X/DAY
     Route: 048
  4. ESAPENT [Concomitant]
     Dosage: 1 MG, 1X/DAY
     Route: 048
  5. BISOPROLOL [Suspect]
     Indication: HYPERTENSIVE CARDIOMYOPATHY
     Dosage: 5 MG, 1X/DAY
     Route: 048
     Dates: start: 20101101, end: 20110105
  6. PANTOPRAZOLE SODIUM [Concomitant]
     Dosage: 40 MG, 1X/DAY
     Route: 048
  7. RAMIPRIL [Suspect]
     Indication: HYPERTENSIVE CARDIOMYOPATHY
     Dosage: 10 MG, 1X/DAY
     Route: 048
     Dates: start: 20101101, end: 20110105
  8. REPAGLINIDE [Concomitant]
     Indication: TYPE 2 DIABETES MELLITUS
     Dosage: 0.5 MG, 1X/DAY
     Route: 048

REACTIONS (8)
  - HYPOTENSION [None]
  - ATRIAL FIBRILLATION [None]
  - HEART RATE IRREGULAR [None]
  - TACHYARRHYTHMIA [None]
  - ASTHENIA [None]
  - BLOOD POTASSIUM INCREASED [None]
  - DYSPNOEA [None]
  - PALPITATIONS [None]
